FAERS Safety Report 6971897-6 (Version None)
Quarter: 2010Q3

REPORT INFORMATION
  Report Type: 
  Country: None (occurrence: None)
  Receive Date: 20100908
  Receipt Date: 20100908
  Transmission Date: 20110219
  Serious: Yes (Hospitalization)
  Sender: FDA-Public Use
  Company Number: None

PATIENT
  Sex: Female
  Weight: 61 kg

DRUGS (2)
  1. CISPLATIN [Suspect]
     Dosage: 133 MG
     Dates: end: 20100825
  2. TAXOTERE [Suspect]
     Dosage: 133 MG
     Dates: end: 20100825

REACTIONS (4)
  - ASTHENIA [None]
  - DEHYDRATION [None]
  - FLUID INTAKE REDUCED [None]
  - HYPOPHAGIA [None]
